APPROVED DRUG PRODUCT: TRAVATAN Z
Active Ingredient: TRAVOPROST
Strength: 0.004%
Dosage Form/Route: SOLUTION/DROPS;OPHTHALMIC
Application: N021994 | Product #001 | TE Code: AT2
Applicant: SANDOZ INC
Approved: Sep 21, 2006 | RLD: Yes | RS: Yes | Type: RX

PATENTS:
Patent 8323630 | Expires: Sep 20, 2027
Patent 8268299 | Expires: Oct 13, 2029
Patent 8388941 | Expires: Sep 20, 2027